FAERS Safety Report 8007692-9 (Version None)
Quarter: 2011Q4

REPORT INFORMATION
  Report Type: 
  Country: None (occurrence: None)
  Receive Date: 20111227
  Receipt Date: 20111209
  Transmission Date: 20120403
  Serious: No
  Sender: FDA-Public Use
  Company Number: US-ABBOTT-11P-163-0883707-00

PATIENT
  Sex: Male
  Weight: 73.094 kg

DRUGS (6)
  1. VICODIN [Concomitant]
     Indication: PAIN
  2. LUPRON DEPOT [Suspect]
     Indication: PROSTATE CANCER
     Route: 050
     Dates: start: 20110501, end: 20110501
  3. PEPCID AC [Concomitant]
     Indication: NAUSEA
  4. LUPRON DEPOT [Suspect]
     Dosage: SECOND INJECTION
     Route: 050
     Dates: start: 20110901
  5. BICALUTAMIDE [Suspect]
     Indication: PROSTATE CANCER
     Route: 050
     Dates: start: 20110501, end: 20110501
  6. BICALUTAMIDE [Suspect]

REACTIONS (14)
  - DECREASED APPETITE [None]
  - BODY TEMPERATURE INCREASED [None]
  - TREMOR [None]
  - HYPERAESTHESIA [None]
  - NAUSEA [None]
  - TACHYPHRENIA [None]
  - PAIN [None]
  - INSOMNIA [None]
  - ALOPECIA [None]
  - HYPERTENSION [None]
  - EMOTIONAL DISORDER [None]
  - HYPERVIGILANCE [None]
  - INFECTION [None]
  - DEPRESSION [None]
